FAERS Safety Report 4861853-6 (Version None)
Quarter: 2005Q4

REPORT INFORMATION
  Report Type: 
  Country: None (occurrence: None)
  Receive Date: 20051129
  Receipt Date: 20050518
  Transmission Date: 20060501
  Serious: Yes (Disabling)
  Sender: FDA-Public Use
  Company Number: WAES 0505USA02240

PATIENT
  Age: 70 Year
  Sex: Female
  Weight: 65.7716 kg

DRUGS (4)
  1. FOSAMAX [Suspect]
     Indication: OSTEOPENIA
     Dosage: 70 MG WKY PO
     Route: 048
     Dates: start: 20030501, end: 20050401
  2. FOSAMAX [Suspect]
     Indication: OSTEOPENIA
     Dosage: 70 MG WKY PO
     Route: 048
     Dates: start: 20050501, end: 20050501
  3. TAMBOCOR [Concomitant]
  4. TOPROL-XL [Concomitant]

REACTIONS (2)
  - ARTHRALGIA [None]
  - MYALGIA [None]
